FAERS Safety Report 8432921-7 (Version None)
Quarter: 2012Q2

REPORT INFORMATION
  Report Type: 
  Country: None (occurrence: None)
  Receive Date: 20120613
  Receipt Date: 20120606
  Transmission Date: 20120825
  Serious: Yes (Other)
  Sender: FDA-Public Use
  Company Number: GB-AMGEN-GBRSP2012029053

PATIENT
  Age: 56 Year
  Sex: Female
  Weight: 61.3 kg

DRUGS (39)
  1. ARANESP [Suspect]
     Dosage: 30 MUG, QWK
     Route: 042
     Dates: start: 20080410, end: 20110420
  2. CALCIUM CARBONATE [Concomitant]
     Dosage: 500 MG, UNK
     Dates: start: 20060819
  3. SEVELAMER [Concomitant]
     Dosage: 1600 MG, TID
     Dates: start: 20120313
  4. IRON SUCROSE [Concomitant]
     Dosage: 100 MG, QMO
     Dates: start: 20061214, end: 20070216
  5. ARANESP [Suspect]
     Dosage: 40 MUG, QWK
     Route: 042
     Dates: start: 20051031, end: 20080410
  6. RANITIDINE [Concomitant]
     Dosage: 150 MG, QHS
     Dates: start: 20050920
  7. ALFACALCIDOL [Concomitant]
     Dosage: 0.5 MUG, 3 TIMES/WK
     Dates: start: 20060525, end: 20060717
  8. IRON SUCROSE [Concomitant]
     Dosage: 100 MG, QMO
     Dates: start: 20041215, end: 20050310
  9. IRON SUCROSE [Concomitant]
     Dosage: 100 MG, QMO
     Dates: start: 20070613, end: 20070815
  10. IRON SUCROSE [Concomitant]
     Dosage: 100 MG, QWK
     Dates: start: 20071220, end: 20080212
  11. ARANESP [Suspect]
     Dosage: 40 MUG, QWK
     Route: 042
     Dates: start: 20050707, end: 20050902
  12. ARANESP [Suspect]
     Dosage: 20 MUG, QWK
     Route: 042
     Dates: start: 20120313, end: 20120501
  13. EZETIMIBE [Concomitant]
     Dosage: 10 MG, QD
     Dates: start: 20070324, end: 20070616
  14. ALFACALCIDOL [Concomitant]
     Dosage: 0.25 MUG, QD
     Dates: start: 20070615, end: 20120313
  15. ALFACALCIDOL [Concomitant]
     Dosage: 0.25 MUG, QD
     Dates: start: 20120313
  16. ASPIRIN [Concomitant]
     Dosage: 75 MG, QD
     Dates: start: 20120313
  17. IRON SUCROSE [Concomitant]
     Dosage: 100 MG, QWK
     Dates: start: 20060625, end: 20060828
  18. IRBESARTAN [Concomitant]
     Dosage: 75 MG, QD
     Dates: start: 20070915, end: 20071017
  19. AMLODIPINE [Concomitant]
     Dosage: 10 MG, QD
     Dates: start: 20050920, end: 20060925
  20. QUININE SULFATE [Concomitant]
     Dosage: 300 MG, UNK
     Dates: start: 20050920
  21. ALFACALCIDOL [Concomitant]
     Dosage: 0.25 MUG, 3 TIMES/WK
     Route: 048
     Dates: start: 20060929, end: 20070430
  22. IRON SUCROSE [Concomitant]
     Dosage: 100 MG, QMO
     Dates: start: 20051223, end: 20060310
  23. IRON SUCROSE [Concomitant]
     Dosage: 100 MG, QMO
     Dates: start: 20120214, end: 20120430
  24. ARANESP [Suspect]
     Indication: PRODUCT USED FOR UNKNOWN INDICATION
     Dosage: 30 MUG, QWK
     Route: 042
     Dates: start: 20030211, end: 20040909
  25. ARANESP [Suspect]
     Dosage: 50 MUG, QWK
     Route: 042
     Dates: start: 20050902, end: 20051017
  26. IRON SUCROSE [Concomitant]
     Dosage: 100 MG, QWK
     Dates: start: 20050310, end: 20050601
  27. IRON SUCROSE [Concomitant]
     Dosage: 100 MG, QMO
     Dates: start: 20080304, end: 20080520
  28. ARANESP [Suspect]
     Dosage: 30 MUG, QWK
     Route: 042
     Dates: start: 20120501
  29. CLOPIDOGREL [Concomitant]
     Dosage: 75 MG, QD
     Dates: start: 20050920
  30. CARVEDILOL [Concomitant]
     Dosage: 25 MG, BID
     Dates: start: 20120313
  31. SEVELAMER [Concomitant]
     Dosage: 800 MG, 3 TIMES/WK
     Dates: start: 20050920, end: 20060819
  32. IRON SUCROSE [Concomitant]
     Dosage: 100 MG, QMO
     Dates: start: 20070901, end: 20071130
  33. FLUVASTATIN [Concomitant]
     Dosage: 20 MG, 2 TIMES/WK
     Dates: start: 20050920, end: 20060620
  34. ARANESP [Suspect]
     Dosage: 40 MUG, QWK
     Route: 042
     Dates: start: 20040909, end: 20050505
  35. LISINOPRIL [Concomitant]
     Dosage: 30 MG, QD
     Dates: start: 20120313
  36. EZETIMIBE [Concomitant]
     Dosage: 10 MG, QD
     Dates: start: 20120313
  37. ATENOLOL [Concomitant]
     Dosage: 50 MG, PRN
     Dates: start: 20050920, end: 20060820
  38. IRON SUCROSE [Concomitant]
     Dosage: 100 MG, QWK
     Dates: start: 20040614, end: 20040823
  39. IRON SUCROSE [Concomitant]
     Dosage: 100 MG, QMO
     Dates: start: 20060323, end: 20060630

REACTIONS (4)
  - HAEMOGLOBIN DECREASED [None]
  - ANTI-ERYTHROPOIETIN ANTIBODY POSITIVE [None]
  - THERAPEUTIC RESPONSE DECREASED [None]
  - FULL BLOOD COUNT DECREASED [None]
